FAERS Safety Report 10580353 (Version 1)
Quarter: 2014Q4

REPORT INFORMATION
  Report Type: Spontaneous
  Country: US (occurrence: US)
  Receive Date: 20141112
  Receipt Date: 20141112
  Transmission Date: 20150529
  Serious: Yes (Other)
  Sender: FDA-Public Use
  Company Number: US-RB-070093-14

PATIENT
  Sex: Female

DRUGS (1)
  1. MUCINEX MAXIMUM STRENGTH [Suspect]
     Active Substance: GUAIFENESIN
     Indication: SECRETION DISCHARGE
     Dosage: STARTED TAKING THE DRUG FOR THE FIRST TIME 6 MONTHS BEFORE.
     Route: 065
     Dates: end: 20141103

REACTIONS (2)
  - Heart rate irregular [Recovered/Resolved]
  - Incorrect drug administration duration [Recovered/Resolved]
